FAERS Safety Report 25402043 (Version 2)
Quarter: 2025Q3

REPORT INFORMATION
  Report Type: Spontaneous
  Country: EU (occurrence: EU)
  Receive Date: 20250605
  Receipt Date: 20250717
  Transmission Date: 20251020
  Serious: Yes (Disabling, Other)
  Sender: AMERICAN REGENT
  Company Number: EU-AMERICAN REGENT INC-2025002223

PATIENT
  Age: 13 Year
  Sex: Female
  Weight: 44 kg

DRUGS (1)
  1. VENOFER [Suspect]
     Active Substance: IRON SUCROSE
     Indication: Rectal haemorrhage
     Route: 051
     Dates: start: 20241203, end: 20241203

REACTIONS (10)
  - Malaise [Recovered/Resolved]
  - Hypothermia [Recovered/Resolved]
  - Product name confusion [Recovered/Resolved]
  - Burning sensation [Unknown]
  - Pallor [Unknown]
  - Paraesthesia [Recovered/Resolved]
  - Vomiting [Unknown]
  - Headache [Unknown]
  - Product use issue [Unknown]
  - Product use in unapproved indication [Unknown]

NARRATIVE: CASE EVENT DATE: 20241203
